FAERS Safety Report 23165604 (Version 1)
Quarter: 2023Q4

REPORT INFORMATION
  Report Type: Spontaneous
  Country: US (occurrence: US)
  Receive Date: 20231109
  Receipt Date: 20231109
  Transmission Date: 20240110
  Serious: No
  Sender: FDA-Public Use
  Company Number: US-ANIPHARMA-2023-US-035481

PATIENT
  Age: 46 Year
  Sex: Female

DRUGS (5)
  1. CORTICOTROPIN [Suspect]
     Active Substance: CORTICOTROPIN
     Indication: Multiple sclerosis
     Dosage: 1 ML ONCE DAILY
     Route: 030
     Dates: start: 20231008, end: 20231020
  2. LOSARTAN [Concomitant]
     Active Substance: LOSARTAN
     Route: 065
  3. VITAMIN D [Concomitant]
     Active Substance: VITAMIN D NOS
     Route: 065
  4. unspecified medication for multiple sclerosis [Concomitant]
  5. UNSPECIFIED INGREDIENT [Concomitant]
     Active Substance: UNSPECIFIED INGREDIENT

REACTIONS (8)
  - Abdominal distension [Recovering/Resolving]
  - Contraindicated product administered [Recovered/Resolved]
  - Fatigue [Recovering/Resolving]
  - Asthenia [Recovering/Resolving]
  - Pain [Recovering/Resolving]
  - Hypertension [Recovering/Resolving]
  - Peripheral swelling [Recovering/Resolving]
  - Product dose omission issue [Recovered/Resolved]

NARRATIVE: CASE EVENT DATE: 20231009
